FAERS Safety Report 10058622 (Version 2)
Quarter: 2014Q2

REPORT INFORMATION
  Report Type: Spontaneous
  Country: IN (occurrence: IN)
  Receive Date: 20140404
  Receipt Date: 20140408
  Transmission Date: 20141212
  Serious: Yes (Hospitalization, Other)
  Sender: FDA-Public Use
  Company Number: IN-009507513-1404IND002334

PATIENT
  Age: 47 Year
  Sex: Female

DRUGS (2)
  1. JANUVIA [Suspect]
     Indication: DIABETES MELLITUS
     Dosage: 100 MG, QD
     Route: 048
  2. INSULIN [Concomitant]
     Dosage: UNK, BID

REACTIONS (2)
  - Peptic ulcer [Unknown]
  - Large intestinal ulcer [Unknown]
